FAERS Safety Report 7686076-7 (Version None)
Quarter: 2011Q3

REPORT INFORMATION
  Report Type: 
  Country: None (occurrence: None)
  Receive Date: 20110816
  Receipt Date: 20110811
  Transmission Date: 20111222
  Serious: Yes (Death, Other)
  Sender: FDA-Public Use
  Company Number: PHHY2010US77775

PATIENT
  Sex: Female
  Weight: 60 kg

DRUGS (18)
  1. EXJADE [Suspect]
     Dosage: 1000 MG, QD
     Route: 048
     Dates: start: 20101115
  2. ESTROVEN [Concomitant]
  3. METOPROLOL TARTRATE [Concomitant]
     Dosage: 75 MG, UNK
  4. VITAMIN D [Concomitant]
  5. ULTRAM [Concomitant]
     Dosage: UNK UKN, UNK
  6. LYRICA [Concomitant]
     Dosage: 150 MG, BID
  7. PRILOSEC [Concomitant]
     Dosage: 20 MG, UNK
  8. TYLENOL-500 [Concomitant]
  9. PREDNISONE [Concomitant]
     Dosage: 10 MG, UNK
  10. MULTI-VITAMINS [Concomitant]
  11. ANTIARRHYTHMICS, CLASS I AND III [Concomitant]
  12. SIMAVASTATIN [Concomitant]
  13. TRAMADOL HCL [Concomitant]
     Dosage: 25 MG, BID
  14. DIGOXIN [Concomitant]
  15. FISH OIL [Concomitant]
  16. EXJADE [Suspect]
     Indication: MYELODYSPLASTIC SYNDROME
     Dosage: 1500 MG, QD
     Route: 048
     Dates: start: 20101113
  17. VIDAZA [Concomitant]
     Indication: MYELODYSPLASTIC SYNDROME
     Route: 042
  18. CALCIUM CARBONATE [Concomitant]

REACTIONS (13)
  - TERMINAL STATE [None]
  - RETINAL DISORDER [None]
  - DIARRHOEA [None]
  - PNEUMONIA [None]
  - INFLUENZA [None]
  - VITREOUS FLOATERS [None]
  - VISUAL IMPAIRMENT [None]
  - HYDRONEPHROSIS [None]
  - MYELODYSPLASTIC SYNDROME [None]
  - TRANSITIONAL CELL CARCINOMA [None]
  - HAEMATURIA [None]
  - URINARY TRACT DISORDER [None]
  - URINE LEUKOCYTE ESTERASE [None]
